FAERS Safety Report 4586625-1 (Version None)
Quarter: 2005Q1

REPORT INFORMATION
  Report Type: 
  Country: None (occurrence: None)
  Receive Date: 20050218
  Receipt Date: 20040802
  Transmission Date: 20050727
  Serious: No
  Sender: FDA-Public Use
  Company Number: US-BRISTOL-MYERS SQUIBB COMPANY-12659496

PATIENT
  Age: 57 Year
  Sex: Female
  Weight: 82 kg

DRUGS (5)
  1. TAXOL [Suspect]
     Indication: BREAST CANCER METASTATIC
     Route: 042
     Dates: start: 20040524
  2. BENADRYL [Concomitant]
     Indication: PREMEDICATION
  3. LIPITOR [Concomitant]
  4. CELEBREX [Concomitant]
  5. MULTIVITAMIN [Concomitant]

REACTIONS (1)
  - NEUROPATHY PERIPHERAL [None]
